FAERS Safety Report 25159529 (Version 1)
Quarter: 2025Q2

REPORT INFORMATION
  Report Type: Spontaneous
  Country: CA (occurrence: CA)
  Receive Date: 20250404
  Receipt Date: 20250404
  Transmission Date: 20250717
  Serious: Yes (Other)
  Sender: TEVA
  Company Number: CA-TEVA-VS-3317415

PATIENT
  Age: 62 Year
  Sex: Female
  Weight: 75 kg

DRUGS (3)
  1. ZOLEDRONIC ACID [Suspect]
     Active Substance: ZOLEDRONIC ACID
     Indication: Breast cancer
     Route: 042
  2. ZOLEDRONIC ACID [Suspect]
     Active Substance: ZOLEDRONIC ACID
     Indication: Breast cancer
     Route: 065
  3. LETROZOLE [Concomitant]
     Active Substance: LETROZOLE
     Indication: Product used for unknown indication
     Route: 065

REACTIONS (6)
  - Eye disorder [Recovered/Resolved]
  - Visual impairment [Recovered/Resolved]
  - Pyrexia [Recovered/Resolved]
  - Eye swelling [Recovered/Resolved]
  - Musculoskeletal pain [Recovered/Resolved]
  - Eye pain [Recovered/Resolved]
